FAERS Safety Report 19605621 (Version 1)
Quarter: 2021Q3

REPORT INFORMATION
  Report Type: Spontaneous
  Country: US (occurrence: US)
  Receive Date: 20210723
  Receipt Date: 20210723
  Transmission Date: 20211014
  Serious: Yes (Hospitalization)
  Sender: FDA-Public Use
  Company Number: US-ROCHE-2872023

PATIENT
  Age: 79 Year
  Sex: Female
  Weight: 68.1 kg

DRUGS (3)
  1. GAZYVA [Suspect]
     Active Substance: OBINUTUZUMAB
     Indication: CHRONIC LYMPHOCYTIC LEUKAEMIA
     Route: 042
     Dates: start: 20210714
  2. METOPROLOL. [Concomitant]
     Active Substance: METOPROLOL
  3. ALLOPURINOL. [Concomitant]
     Active Substance: ALLOPURINOL

REACTIONS (7)
  - Loss of consciousness [Recovered/Resolved]
  - Off label use [Unknown]
  - White blood cell count decreased [Not Recovered/Not Resolved]
  - Oxygen saturation decreased [Unknown]
  - Hypotension [Recovered/Resolved]
  - Flushing [Recovered/Resolved]
  - Back pain [Recovered/Resolved]

NARRATIVE: CASE EVENT DATE: 20210714
